FAERS Safety Report 7022536-X (Version None)
Quarter: 2010Q3

REPORT INFORMATION
  Report Type: 
  Country: None (occurrence: None)
  Receive Date: 20100930
  Receipt Date: 20100920
  Transmission Date: 20110219
  Serious: Yes (Other)
  Sender: FDA-Public Use
  Company Number: BR-PFIZER INC-2010119347

PATIENT
  Age: 27 Year
  Sex: Female
  Weight: 58 kg

DRUGS (4)
  1. DEPO-PROVERA [Suspect]
     Indication: CONTRACEPTION
     Dosage: 150 MG, EVERY 3 MONTHS (EVERY 90 DAYS)
     Route: 030
     Dates: start: 20070101, end: 20080101
  2. DEPO-PROVERA [Suspect]
     Indication: MENSTRUAL DISCOMFORT
     Dosage: 150 MG, EVERY 3 MONTHS
     Route: 030
     Dates: start: 20081201
  3. AMOXICILLIN [Concomitant]
     Indication: DENTAL OPERATION
     Dosage: UNK
     Dates: start: 20100401, end: 20100401
  4. DICLOFENAC [Concomitant]
     Indication: DENTAL OPERATION
     Dosage: UNK
     Dates: start: 20100401, end: 20100401

REACTIONS (4)
  - AMENORRHOEA [None]
  - MENOMETRORRHAGIA [None]
  - MENSTRUATION IRREGULAR [None]
  - POLYCYSTIC OVARIES [None]
